FAERS Safety Report 23563902 (Version 1)
Quarter: 2024Q1

REPORT INFORMATION
  Report Type: Spontaneous
  Country: DK (occurrence: DK)
  Receive Date: 20240226
  Receipt Date: 20240226
  Transmission Date: 20240410
  Serious: Yes (Other)
  Sender: FDA-Public Use
  Company Number: None

PATIENT

DRUGS (2)
  1. ACARIZAX [Suspect]
     Active Substance: DERMATOPHAGOIDES FARINAE\DERMATOPHAGOIDES PTERONYSSINUS
     Indication: Allergy prophylaxis
     Dosage: 12 SQ-HDM, QD
     Route: 060
     Dates: start: 20230918, end: 20231006
  2. DESLORATADIN ^STADA^ [Concomitant]
     Indication: Hypersensitivity
     Dates: start: 20230331

REACTIONS (3)
  - Laryngeal oedema [Recovered/Resolved]
  - Oral disorder [Recovered/Resolved]
  - Sensation of foreign body [Recovered/Resolved]

NARRATIVE: CASE EVENT DATE: 20231006
